FAERS Safety Report 16196244 (Version 1)
Quarter: 2019Q2

REPORT INFORMATION
  Report Type: Spontaneous
  Country: US (occurrence: US)
  Receive Date: 20190415
  Receipt Date: 20190415
  Transmission Date: 20190711
  Serious: Yes (Life-Threatening, Disabling, Other)
  Sender: FDA-Public Use
  Company Number: US-CIPLA LTD.-2019US01897

PATIENT

DRUGS (6)
  1. PAXEL [Concomitant]
     Active Substance: PACLITAXEL
     Indication: DEPRESSION
     Dosage: 15 MILLIGRAM, BID (TWICE A DAY) TABLET
     Route: 065
     Dates: start: 2011
  2. TRAZODONE [Concomitant]
     Active Substance: TRAZODONE HYDROCHLORIDE
     Indication: SLEEP TERROR
     Dosage: 50 MILLIGRAM, QD (TABLET ONE AT NIGHT)
     Route: 065
     Dates: start: 2011
  3. GABAPENTIN. [Suspect]
     Active Substance: GABAPENTIN
     Indication: SPINAL OSTEOARTHRITIS
  4. PAROXETINE. [Concomitant]
     Active Substance: PAROXETINE
     Indication: DEPRESSION
     Dosage: 40 MILLIGRAM, QD (ONCE A DAY) TABLET
     Route: 065
     Dates: start: 2011
  5. ALBUTEROL                          /00139501/ [Concomitant]
     Active Substance: ALBUTEROL
     Indication: ASTHMA
     Dosage: UNK
     Route: 065
  6. GABAPENTIN. [Suspect]
     Active Substance: GABAPENTIN
     Indication: NEURALGIA
     Dosage: 4 DOSAGE FORM PER DAY (ONE THE MORNING, ONE IN EVENING, AND TWO BEDTIME)
     Route: 048
     Dates: start: 2018, end: 2018

REACTIONS (5)
  - Head injury [Unknown]
  - Loss of consciousness [Unknown]
  - Panic attack [Unknown]
  - Fall [Unknown]
  - Feeling abnormal [Recovering/Resolving]

NARRATIVE: CASE EVENT DATE: 2018
